FAERS Safety Report 5207043-9 (Version None)
Quarter: 2007Q1

REPORT INFORMATION
  Report Type: 
  Country: None (occurrence: None)
  Receive Date: 20070110
  Receipt Date: 20070102
  Transmission Date: 20070707
  Serious: Yes (Other)
  Sender: FDA-Public Use
  Company Number: 2006SP008253

PATIENT
  Age: 72 Year
  Sex: Male
  Weight: 113.3993 kg

DRUGS (24)
  1. ASMANEX TWISTHALER [Suspect]
     Indication: ASTHMA
     Dosage: 1 DF;QD;PO
     Route: 048
     Dates: end: 20061127
  2. ALBUTEROL SULATE [Concomitant]
  3. SLO-MAG [Concomitant]
  4. SIMVASTATIN [Concomitant]
  5. HYDROCHLOROTHIAZIDE [Concomitant]
  6. ATENOLOL [Concomitant]
  7. ISOSORBIDE DINITRATE [Concomitant]
  8. NITROGLYCERIN [Concomitant]
  9. FORMOTEROL FUMARATE [Concomitant]
  10. CROMOLYN SODIUM [Concomitant]
  11. ALBUTEROL SULATE [Concomitant]
  12. DIPHENHYDRAMINE HYDROCHLORIDE [Concomitant]
  13. CARISOPRODOL [Concomitant]
  14. NAPROXEN SODIUM [Concomitant]
  15. AMANTADINE HCL [Concomitant]
  16. VITAMIN E [Concomitant]
  17. VITAMIN B6 [Concomitant]
  18. VITAMIN B-12 [Concomitant]
  19. FOLIC ACID [Concomitant]
  20. NIACIN [Concomitant]
  21. MAGNESIUM OXIDE [Concomitant]
  22. POTASSIUM GLUCONATE TAB [Concomitant]
  23. ASPIRIN [Concomitant]
  24. ATROVENT [Concomitant]

REACTIONS (5)
  - ASTHENIA [None]
  - GAIT DISTURBANCE [None]
  - HYPOTONIA [None]
  - MYALGIA [None]
  - SKIN CANCER [None]
